FAERS Safety Report 7037385-6 (Version None)
Quarter: 2010Q4

REPORT INFORMATION
  Report Type: 
  Country: None (occurrence: None)
  Receive Date: 20101011
  Receipt Date: 20100929
  Transmission Date: 20110411
  Serious: Yes (Other)
  Sender: FDA-Public Use
  Company Number: US-PFIZER INC-2010124019

PATIENT
  Sex: Female
  Weight: 60.771 kg

DRUGS (10)
  1. ESTRING [Suspect]
     Indication: OFF LABEL USE
     Dosage: UNK
     Route: 067
     Dates: start: 20100910
  2. ESTRING [Suspect]
     Indication: VAGINAL DISCHARGE
  3. ESTRING [Suspect]
     Indication: PAIN
  4. FLUCONAZOLE [Suspect]
     Indication: OFF LABEL USE
     Dosage: 150 MG, 3X/DAY
     Dates: start: 20100908, end: 20100910
  5. FLUCONAZOLE [Suspect]
     Indication: VAGINAL DISCHARGE
  6. FLUCONAZOLE [Suspect]
     Indication: PAIN
  7. ALBUTEROL [Concomitant]
     Indication: CHRONIC OBSTRUCTIVE PULMONARY DISEASE
     Dosage: UNK
  8. ALBUTEROL [Concomitant]
     Indication: LUNG DISORDER
  9. VITAMINS [Concomitant]
  10. MINERALS NOS [Concomitant]

REACTIONS (6)
  - DRUG INEFFECTIVE FOR UNAPPROVED INDICATION [None]
  - HERPES VIRUS INFECTION [None]
  - MALAISE [None]
  - VAGINAL SWELLING [None]
  - VULVOVAGINAL PAIN [None]
  - VULVOVAGINAL PRURITUS [None]
